FAERS Safety Report 12855334 (Version 1)
Quarter: 2016Q4

REPORT INFORMATION
  Report Type: Report from Study
  Country: US (occurrence: US)
  Receive Date: 20161017
  Receipt Date: 20161017
  Transmission Date: 20170207
  Serious: Yes (Death)
  Sender: FDA-Public Use
  Company Number: US-EXELIXIS-CABO-16007295

PATIENT
  Sex: Male

DRUGS (6)
  1. PRILOSEC [Concomitant]
     Active Substance: OMEPRAZOLE MAGNESIUM
  2. ATENOLOL. [Concomitant]
     Active Substance: ATENOLOL
  3. CABOMETYX [Suspect]
     Active Substance: CABOZANTINIB S-MALATE
     Indication: RENAL CANCER
     Dosage: 60 MG, QD
     Route: 048
     Dates: start: 20160628, end: 20160810
  4. PREDNISONE. [Concomitant]
     Active Substance: PREDNISONE
  5. LOVENOX [Concomitant]
     Active Substance: ENOXAPARIN SODIUM
  6. PROSCAR [Concomitant]
     Active Substance: FINASTERIDE

REACTIONS (1)
  - Death [Fatal]
